FAERS Safety Report 22003098 (Version 1)
Quarter: 2023Q1

REPORT INFORMATION
  Report Type: Spontaneous
  Country: GB (occurrence: GB)
  Receive Date: 20230217
  Receipt Date: 20230217
  Transmission Date: 20230418
  Serious: Yes (Other)
  Sender: FDA-Public Use
  Company Number: GB-MHRA-CER-RQM-4348015001

PATIENT
  Age: 42 Year
  Sex: Female

DRUGS (38)
  1. AMLODIPINE [Suspect]
     Active Substance: AMLODIPINE BESYLATE
     Indication: Product used for unknown indication
     Dosage: 5 MILLIGRAM, ONCE A DAY
     Route: 048
  2. ACETYLCYSTEINE [Concomitant]
     Active Substance: ACETYLCYSTEINE
     Indication: Product used for unknown indication
     Dosage: 1 GTT DROPS, ONCE A DAY LEFT EYE
     Route: 065
     Dates: start: 20221221
  3. CALCIUM CARBONATE\CHOLECALCIFEROL [Concomitant]
     Active Substance: CALCIUM CARBONATE\CHOLECALCIFEROL
     Indication: Product used for unknown indication
     Dosage: 1.5 GRAM, TWO TIMES A DAY
     Route: 048
     Dates: start: 20221213
  4. Aqueous [Concomitant]
     Indication: Product used for unknown indication
     Dosage: 1 DOSAGE FORM, 3 TIMES A DAY
     Route: 061
     Dates: start: 20221214
  5. BECLOMETHASONE DIPROPIONATE [Concomitant]
     Active Substance: BECLOMETHASONE DIPROPIONATE
     Indication: Product used for unknown indication
     Dosage: 2 DOSAGE FORM, TWO TIMES A DAY(100MICROGRAMS/DOSE INHALER CFC FREE)
     Route: 055
     Dates: start: 20221220
  6. ALFENTANIL [Concomitant]
     Active Substance: ALFENTANIL
     Indication: Product used for unknown indication
     Dosage: 17 MILLILITER
     Route: 058
     Dates: start: 20221219
  7. DEXAMETHASONE [Concomitant]
     Active Substance: DEXAMETHASONE
     Indication: Product used for unknown indication
     Dosage: 1 GTT DROPS, FOUR TIMES/DAY LEFT EYE
     Route: 065
     Dates: start: 20221219
  8. DOBUTAMINE [Concomitant]
     Active Substance: DOBUTAMINE HYDROCHLORIDE
     Indication: Product used for unknown indication
     Dosage: 25 MILLILITER (CENTRAL)
     Route: 042
     Dates: start: 20221220
  9. DEXTROSE [Concomitant]
     Active Substance: DEXTROSE
     Indication: Product used for unknown indication
     Dosage: 500 MILLILITER
     Route: 042
     Dates: start: 20221219
  10. KABIVEN [Concomitant]
     Active Substance: AMINO ACIDS\ANHYDROUS DEXTROSE\CALCIUM CHLORIDE\MAGNESIUM SULFATE HEPTAHYDRATE\POTASSIUM CHLORIDE\SO
     Indication: Product used for unknown indication
     Dosage: 2566 MILLILITER 1 BAG
     Route: 042
     Dates: start: 20221219
  11. LEVOBUPIVACAINE [Concomitant]
     Active Substance: LEVOBUPIVACAINE
     Indication: Product used for unknown indication
     Dosage: 500 MILLILITER
     Route: 008
     Dates: start: 20221219
  12. LEVOBUPIVACAINE [Concomitant]
     Active Substance: LEVOBUPIVACAINE
     Dosage: 200 MILLILITER
     Route: 008
     Dates: start: 20221219
  13. NOREPINEPHRINE [Concomitant]
     Active Substance: NOREPINEPHRINE
     Indication: Product used for unknown indication
     Dosage: 50 MILLILITER, CENTRAL
     Route: 042
     Dates: start: 20221220
  14. NOVORAPID [Concomitant]
     Active Substance: INSULIN ASPART
     Indication: Product used for unknown indication
     Dosage: REFER TO STRUCTURED NOTES FOR REGIMEN UNSCHEDULED
     Route: 058
     Dates: start: 20221219
  15. HUMAN RED BLOOD CELL [Concomitant]
     Active Substance: HUMAN RED BLOOD CELL
     Indication: Product used for unknown indication
     Dosage: ALIQUOT(S) OR UNIT(S) TO PRESCRIBED VOLU UNSCHEDULED IV FOR 4 DOSE(S)
     Route: 065
     Dates: start: 20221219
  16. ISONIAZID\RIFAMPIN [Concomitant]
     Active Substance: ISONIAZID\RIFAMPIN
     Indication: Tuberculosis
     Dosage: 4 DOSAGE FORM, ONCE A DAY
     Route: 048
     Dates: start: 20221221
  17. TIMOLOL [Concomitant]
     Active Substance: TIMOLOL
     Indication: Product used for unknown indication
     Dosage: 1 GTT DROPS, ONCE A DAY (LEFT EYE)
     Route: 065
     Dates: start: 20221220
  18. TRIMOVATE [Concomitant]
     Active Substance: CLOBETASONE BUTYRATE\NYSTATIN\OXYTETRACYCLINE CALCIUM
     Indication: Product used for unknown indication
     Dosage: 1 DOSAGE FORM, TWO TIMES A DAY
     Route: 061
     Dates: start: 20221214
  19. AMOXICILLIN [Concomitant]
     Active Substance: AMOXICILLIN
     Indication: Pneumonia
     Dosage: 1 GRAM, 3 TIMES A DAY
     Route: 048
     Dates: start: 20221220
  20. APIXABAN [Concomitant]
     Active Substance: APIXABAN
     Indication: Atrial fibrillation
     Dosage: 5 MILLIGRAM, TWO TIMES A DAY
     Route: 048
     Dates: start: 20221220
  21. ASPIRIN [Concomitant]
     Active Substance: ASPIRIN
     Indication: Product used for unknown indication
     Dosage: 75 MILLIGRAM, ONCE A DAY
     Route: 048
     Dates: start: 20221215
  22. CLONAZEPAM [Concomitant]
     Active Substance: CLONAZEPAM
     Indication: Product used for unknown indication
     Dosage: 500 MICROGRAM, ONCE A DAY AT BEDTIME
     Route: 048
     Dates: start: 20221220
  23. DIAZEPAM [Concomitant]
     Active Substance: DIAZEPAM
     Indication: Product used for unknown indication
     Dosage: 5 MILLIGRAM, ONCE A DAY AT BEDTIME
     Route: 048
     Dates: start: 20221219, end: 20221220
  24. DIAZEPAM [Concomitant]
     Active Substance: DIAZEPAM
     Dosage: 5 MILLIGRAM, ONCE A DAY AT BEDTIME
     Route: 048
     Dates: start: 20221220, end: 20221221
  25. ENOXAPARIN [Concomitant]
     Active Substance: ENOXAPARIN
     Indication: Thrombosis prophylaxis
     Dosage: 40 MILLIGRAM, ONCE A DAY EVENING AT 6PM
     Route: 058
     Dates: start: 20221214
  26. IBUPROFEN [Concomitant]
     Active Substance: IBUPROFEN
     Indication: Product used for unknown indication
     Dosage: 400 MILLIGRAM, 3 TIMES A DAY
     Route: 048
     Dates: start: 20221219
  27. Immunoglobulin [Concomitant]
     Indication: Immune thrombocytopenia
     Dosage: 20 GRAM, ONCE A DAY
     Route: 042
     Dates: start: 20221220, end: 20221223
  28. METFORMIN [Concomitant]
     Active Substance: METFORMIN HYDROCHLORIDE
     Indication: Product used for unknown indication
     Dosage: 500 MILLIGRAM, TWO TIMES A DAY AT 8AM AND 6PM
     Route: 048
     Dates: start: 20221219
  29. METFORMIN [Concomitant]
     Active Substance: METFORMIN HYDROCHLORIDE
     Dosage: 1 GRAM, ONCE A DAY AT MIDDAY
     Route: 048
     Dates: start: 20221220
  30. MORPHINE SULFATE [Concomitant]
     Active Substance: MORPHINE SULFATE
     Indication: Product used for unknown indication
     Dosage: 10 MILLIGRAM, TWO TIMES A DAY
     Route: 048
     Dates: start: 20221219
  31. MORPHINE SULFATE [Concomitant]
     Active Substance: MORPHINE SULFATE
     Dosage: 1-2MG FOR 5 DOSE(S)
     Route: 042
     Dates: start: 20221221
  32. MORPHINE SULFATE [Concomitant]
     Active Substance: MORPHINE SULFATE
     Dosage: 50 MILLILITER
     Route: 042
     Dates: start: 20221219
  33. ONDANSETRON [Concomitant]
     Active Substance: ONDANSETRON
     Indication: Product used for unknown indication
     Dosage: 4 MILLIGRAM, 3 TIMES A DAY (ORAL/IV/IM)
     Route: 048
     Dates: start: 20221221
  34. OXYGEN [Concomitant]
     Active Substance: OXYGEN
     Indication: Product used for unknown indication
     Dosage: 2 LITER/ MIN
     Route: 055
     Dates: start: 20221219
  35. PREDNISOLONE [Concomitant]
     Active Substance: PREDNISOLONE
     Indication: Product used for unknown indication
     Dosage: 15 MILLIGRAM, ONCE A DAY (EVERY MORNING)
     Route: 048
     Dates: start: 20221221, end: 20221222
  36. ALBUTEROL [Concomitant]
     Active Substance: ALBUTEROL
     Indication: Product used for unknown indication
     Dosage: 200 MICROGRAM, ONCE A DAY
     Route: 042
     Dates: start: 20221220
  37. SIMVASTATIN [Concomitant]
     Active Substance: SIMVASTATIN
     Indication: Product used for unknown indication
     Dosage: 20 MILLIGRAM, ONCE A DAY AT BEDTIME
     Route: 048
     Dates: start: 20221214, end: 20221221
  38. VALPROATE SODIUM [Concomitant]
     Active Substance: VALPROATE SODIUM
     Indication: Product used for unknown indication
     Dosage: 500 MILLIGRAM, ONCE A DAY
     Route: 048
     Dates: start: 20221220

REACTIONS (1)
  - Joint swelling [Recovered/Resolved]
